FAERS Safety Report 6288617-3 (Version None)
Quarter: 2009Q3

REPORT INFORMATION
  Report Type: 
  Country: None (occurrence: None)
  Receive Date: 20090729
  Receipt Date: 20090626
  Transmission Date: 20100115
  Serious: Yes (Hospitalization, Other)
  Sender: FDA-Public Use
  Company Number: TR-ELI_LILLY_AND_COMPANY-TR200907003399

PATIENT
  Age: 38 Year
  Sex: Female

DRUGS (4)
  1. HUMULIN R [Suspect]
     Indication: GESTATIONAL DIABETES
     Dosage: 4 U, EACH MORNING
     Dates: start: 20090401, end: 20090701
  2. HUMULIN R [Suspect]
     Dosage: 4 IU, NOON
     Dates: start: 20090401, end: 20090701
  3. HUMULIN R [Suspect]
     Dosage: 4 IU, EACH EVENING
     Dates: start: 20090401, end: 20090701
  4. HUMULIN N [Suspect]
     Indication: GESTATIONAL DIABETES
     Dosage: 4 U, AT NIGHT
     Dates: start: 20090401, end: 20090701

REACTIONS (4)
  - DRUG EXPOSURE DURING PREGNANCY [None]
  - HAEMORRHAGE [None]
  - STILLBIRTH [None]
  - STRESS [None]
